FAERS Safety Report 11170099 (Version 2)
Quarter: 2015Q2

REPORT INFORMATION
  Report Type: Spontaneous
  Country: FR (occurrence: FR)
  Receive Date: 20150608
  Receipt Date: 20150625
  Transmission Date: 20150821
  Serious: Yes (Hospitalization)
  Sender: FDA-Public Use
  Company Number: FR-ROCHE-1588803

PATIENT
  Age: 45 Year
  Sex: Female
  Weight: 80 kg

DRUGS (10)
  1. DOLIPRANE [Concomitant]
     Active Substance: ACETAMINOPHEN
     Route: 048
  2. ROACTEMRA [Suspect]
     Active Substance: TOCILIZUMAB
     Indication: AXIAL SPONDYLOARTHRITIS
     Route: 041
     Dates: start: 20121106, end: 20150513
  3. METFORMIN [Concomitant]
     Active Substance: METFORMIN HYDROCHLORIDE
     Route: 048
  4. LEVOTHYROX [Concomitant]
     Active Substance: LEVOTHYROXINE
     Route: 048
  5. AVLOCARDYL [Concomitant]
     Active Substance: PROPRANOLOL HYDROCHLORIDE
     Dosage: 40 MG
     Route: 048
  6. RELPAX [Concomitant]
     Active Substance: ELETRIPTAN HYDROBROMIDE
     Route: 048
  7. OMEPRAZOLE. [Concomitant]
     Active Substance: OMEPRAZOLE
     Route: 048
  8. TRAMADOL HYDROCHLORIDE. [Concomitant]
     Active Substance: TRAMADOL HYDROCHLORIDE
     Route: 048
  9. NISIS [Concomitant]
     Active Substance: VALSARTAN
     Route: 048
  10. ROACTEMRA [Suspect]
     Active Substance: TOCILIZUMAB
     Indication: SPONDYLITIS

REACTIONS (4)
  - Infusion related reaction [Recovering/Resolving]
  - Injection site thrombosis [Recovering/Resolving]
  - Injection site pain [Recovering/Resolving]
  - Blood culture positive [Not Recovered/Not Resolved]

NARRATIVE: CASE EVENT DATE: 20150319
